FAERS Safety Report 5061554-8 (Version None)
Quarter: 2006Q3

REPORT INFORMATION
  Report Type: 
  Country: None (occurrence: None)
  Receive Date: 20060703
  Receipt Date: 20060525
  Transmission Date: 20061208
  Serious: No
  Sender: FDA-Public Use
  Company Number: 2005PV001209

PATIENT
  Age: 70 Year
  Sex: Male
  Weight: 83.4619 kg

DRUGS (3)
  1. SYMLIN [Suspect]
     Indication: DIABETES MELLITUS
     Dosage: 120 MG;BID;SC
     Route: 058
     Dates: start: 20050605
  2. LANTUS [Concomitant]
  3. REGULAR INSULIN [Concomitant]

REACTIONS (2)
  - INJECTION SITE BRUISING [None]
  - WEIGHT DECREASED [None]
